FAERS Safety Report 9199694 (Version 7)
Quarter: 2013Q2

REPORT INFORMATION
  Report Type: Spontaneous
  Country: BR (occurrence: BR)
  Receive Date: 20130329
  Receipt Date: 20130626
  Transmission Date: 20140414
  Serious: Yes (Other)
  Sender: FDA-Public Use
  Company Number: BR-PFIZER INC-2013095676

PATIENT
  Age: 77 Year
  Sex: Female
  Weight: 64 kg

DRUGS (9)
  1. ATORVASTATINA CALCICA TEUTO [Suspect]
     Indication: BLOOD CHOLESTEROL
     Dosage: 10 MG, 1X/DAY
     Dates: end: 201202
  2. ATORVASTATINA CALCICA TEUTO [Suspect]
     Dosage: 20 MG, 1X/DAY
     Dates: start: 201202, end: 201302
  3. PURAN T4 [Concomitant]
     Indication: THYROID DISORDER
     Dosage: 75 MG (ONE TABLET), 1X/DAY
  4. GINKGO BILOBA [Concomitant]
     Indication: LABYRINTHITIS
     Dosage: 160 MG, DAILY
  5. OMEPRAZOLE [Concomitant]
     Indication: REFLUX GASTRITIS
     Dosage: 40 MG, DAILY
  6. DIGEPLUS [Concomitant]
     Indication: REFLUX GASTRITIS
     Dosage: 2 DF, 1X/DAY
  7. CARDIZEM [Concomitant]
     Indication: ANGINA PECTORIS
     Dosage: 120 MG, DAILY
  8. CONCOR [Concomitant]
     Indication: HYPERTENSION
     Dosage: 1.25 MG, 1X/DAY
  9. OS-CAL [Concomitant]
     Indication: OSTEOPOROSIS
     Dosage: 600 MG, 1X/DAY

REACTIONS (11)
  - Hypokinesia [Not Recovered/Not Resolved]
  - Muscular weakness [Not Recovered/Not Resolved]
  - Spinal pain [Not Recovered/Not Resolved]
  - Balance disorder [Not Recovered/Not Resolved]
  - Pain in extremity [Recovering/Resolving]
  - Pain [Recovering/Resolving]
  - Arthralgia [Not Recovered/Not Resolved]
  - Back pain [Recovering/Resolving]
  - Pain [Recovering/Resolving]
  - Pain in extremity [Recovering/Resolving]
  - Feeling abnormal [Unknown]
